FAERS Safety Report 12968179 (Version 1)
Quarter: 2016Q4

REPORT INFORMATION
  Report Type: Report from Study
  Country: PK (occurrence: PK)
  Receive Date: 20161123
  Receipt Date: 20161123
  Transmission Date: 20170207
  Serious: Yes (Death)
  Sender: FDA-Public Use
  Company Number: PK-INCYTE CORPORATION-2016IN007391

PATIENT
  Age: 61 Year
  Sex: Male
  Weight: 70 kg

DRUGS (1)
  1. JAKAVI [Suspect]
     Active Substance: RUXOLITINIB
     Indication: PRIMARY MYELOFIBROSIS
     Dosage: 200 MG, BID
     Route: 048
     Dates: start: 20160321

REACTIONS (1)
  - Primary myelofibrosis [Fatal]

NARRATIVE: CASE EVENT DATE: 20160406
